FAERS Safety Report 25211655 (Version 2)
Quarter: 2025Q3

REPORT INFORMATION
  Report Type: Spontaneous
  Country: US (occurrence: US)
  Receive Date: 20250418
  Receipt Date: 20250808
  Transmission Date: 20251020
  Serious: No
  Sender: CSL BEHRING
  Company Number: US-BEH-2025201608

PATIENT
  Sex: Female

DRUGS (2)
  1. HIZENTRA [Suspect]
     Active Substance: HUMAN IMMUNOGLOBULIN G
     Indication: Immunodeficiency common variable
     Dosage: 10 G, QW
     Route: 065
     Dates: start: 202410
  2. HIZENTRA [Suspect]
     Active Substance: HUMAN IMMUNOGLOBULIN G
     Indication: Immunodeficiency common variable
     Dosage: 10 G, QW
     Route: 065
     Dates: start: 202410

REACTIONS (9)
  - Decreased appetite [Unknown]
  - Dyspnoea [Unknown]
  - Peripheral swelling [Unknown]
  - Peripheral swelling [Unknown]
  - Joint swelling [Unknown]
  - Urine output decreased [Unknown]
  - Infusion site pruritus [Unknown]
  - Headache [Unknown]
  - Weight decreased [Unknown]

NARRATIVE: CASE EVENT DATE: 20250101
